FAERS Safety Report 8160309-5 (Version None)
Quarter: 2012Q1

REPORT INFORMATION
  Report Type: 
  Country: None (occurrence: None)
  Receive Date: 20120223
  Receipt Date: 20120223
  Transmission Date: 20120608
  Serious: Yes (Hospitalization)
  Sender: FDA-Public Use
  Company Number: None

PATIENT
  Age: 52 Year
  Sex: Male
  Weight: 56.699 kg

DRUGS (4)
  1. DALTEPARIN SODIUM [Concomitant]
     Indication: THROMBOSIS PROPHYLAXIS
     Dosage: DALTEPARIN 10,000 U
     Route: 058
     Dates: start: 20120131, end: 20120222
  2. DEXAMETHASONE [Interacting]
     Route: 048
  3. LOPRESSOR [Concomitant]
     Route: 048
  4. REVLIMID [Suspect]
     Indication: MULTIPLE MYELOMA
     Dosage: REVLIMID 25 MG
     Route: 048
     Dates: start: 20120214, end: 20120219

REACTIONS (4)
  - DECREASED APPETITE [None]
  - ASTHENIA [None]
  - CONSTIPATION [None]
  - NAUSEA [None]
